APPROVED DRUG PRODUCT: ANTARA (MICRONIZED)
Active Ingredient: FENOFIBRATE
Strength: 43MG
Dosage Form/Route: CAPSULE;ORAL
Application: N021695 | Product #001 | TE Code: AB
Applicant: LUPIN INC
Approved: Nov 30, 2004 | RLD: Yes | RS: No | Type: RX